FAERS Safety Report 9515509 (Version 2)
Quarter: 2013Q3

REPORT INFORMATION
  Report Type: Spontaneous
  Country: IE (occurrence: IE)
  Receive Date: 20130911
  Receipt Date: 20130911
  Transmission Date: 20140515
  Serious: Yes (Hospitalization)
  Sender: FDA-Public Use
  Company Number: PHFR2013IE003182

PATIENT
  Age: 28 Year
  Sex: Male

DRUGS (4)
  1. CLOZARIL [Suspect]
     Indication: SCHIZOPHRENIA, PARANOID TYPE
     Dosage: 325 MG, UNK
     Route: 048
     Dates: start: 20101018, end: 201305
  2. RISPERIDONE [Concomitant]
     Dosage: 2 MG, UNK
     Route: 048
  3. AGOMELATINE [Concomitant]
     Dosage: 25 MG, UNK
     Route: 048
     Dates: start: 2012
  4. PROCYCLIDINE [Concomitant]
     Dosage: 5 MG, UNK
     Route: 048
     Dates: start: 2011

REACTIONS (2)
  - Malaise [Recovered/Resolved]
  - Vomiting [Recovered/Resolved]
